FAERS Safety Report 8551834 (Version 3)
Quarter: 2012Q4

REPORT INFORMATION
  Report Type: 
  Country: PR (occurrence: PR)
  Receive Date: 20120508
  Receipt Date: 20121027
  Transmission Date: 20130627
  Serious: Yes (Hospitalization, Other)
  Sender: FDA-Public Use
  Company Number: PR-ABBOTT-12P-131-0932238-00

PATIENT
  Age: 23 Year
  Sex: Female
  Weight: 49.03 kg

DRUGS (4)
  1. HUMIRA 40 MG/0.8 ML PEN [Suspect]
     Indication: RHEUMATOID ARTHRITIS
     Route: 058
     Dates: start: 20120514
  2. ASACOL [Concomitant]
     Indication: CROHN^S DISEASE
     Dosage: 3 tablets tid
     Route: 048
     Dates: start: 201104
  3. UNKNOWN MEDICATION [Concomitant]
     Indication: CROHN^S DISEASE
     Route: 048
     Dates: start: 201104
  4. HEMATRON [Concomitant]
     Indication: CROHN^S DISEASE
     Route: 048
     Dates: start: 201104

REACTIONS (12)
  - Somnolence [Recovered/Resolved]
  - Speech disorder [Recovered/Resolved]
  - Blood albumin decreased [Recovering/Resolving]
  - Inflammation scan [Recovering/Resolving]
  - Haemoglobin decreased [Recovering/Resolving]
  - Hypoaesthesia oral [Recovered/Resolved]
  - Tongue disorder [Recovered/Resolved]
  - Dizziness [Recovered/Resolved]
  - Fatigue [Recovered/Resolved]
  - Hypotension [Recovered/Resolved]
  - Fatigue [Recovered/Resolved]
  - Hypotension [Recovered/Resolved]
